FAERS Safety Report 22083959 (Version 1)
Quarter: 2023Q1

REPORT INFORMATION
  Report Type: Spontaneous
  Country: ES (occurrence: ES)
  Receive Date: 20230310
  Receipt Date: 20230310
  Transmission Date: 20230418
  Serious: Yes (Life-Threatening, Hospitalization)
  Sender: FDA-Public Use
  Company Number: None

PATIENT
  Age: 66 Year
  Sex: Male
  Weight: 59.7 kg

DRUGS (6)
  1. VINCRISTINE [Suspect]
     Active Substance: VINCRISTINE
     Indication: Plasma cell myeloma
     Dosage: 2 MG, SINGLE (1 MG/ML ,1 VIAL WITH 2 ML.)
     Route: 042
     Dates: start: 20230129, end: 20230129
  2. DOXORUBICIN HYDROCHLORIDE [Suspect]
     Active Substance: DOXORUBICIN HYDROCHLORIDE
     Indication: Plasma cell myeloma
     Dosage: FREQ:24 H;25 MG/M2 (43 MG) IV TO PASS IN 24 HOURS ON 29 AND 30JAN
     Route: 042
     Dates: start: 20230129, end: 20230130
  3. CYCLOPHOSPHAMIDE [Suspect]
     Active Substance: CYCLOPHOSPHAMIDE
     Indication: Plasma cell myeloma
     Dosage: FREQ:12 H;380 MG EVERY 12 HOURS DURING 3 DAYS
     Route: 042
     Dates: start: 20230126, end: 20230128
  4. DARZALEX [Suspect]
     Active Substance: DARATUMUMAB
     Indication: Plasma cell myeloma
     Dosage: 1800 MG, WEEKLY, 1 DOSE EVERY 7 DAYS (1 VIAL OF 15 ML)
     Route: 058
     Dates: start: 20230125, end: 20230201
  5. NEULASTA [Concomitant]
     Active Substance: PEGFILGRASTIM
     Dosage: 6 MG, SINGLE (1 PRE-FILLED SYRINGE OF 0,6 ML)
     Route: 058
     Dates: start: 20230203, end: 20230203
  6. DEXAMETHASONE [Concomitant]
     Active Substance: DEXAMETHASONE
     Indication: Plasma cell myeloma
     Dosage: FREQ:24 H;20 MG PER DAY INITIALLY, WITH PROGRESSIVE REDUCTION OF DOSE TO 2 MG PER DAY
     Route: 048
     Dates: start: 20230117

REACTIONS (2)
  - Septic shock [Recovered/Resolved]
  - Pancytopenia [Not Recovered/Not Resolved]

NARRATIVE: CASE EVENT DATE: 20230203
